FAERS Safety Report 6435847-3 (Version None)
Quarter: 2009Q4

REPORT INFORMATION
  Report Type: 
  Country: None (occurrence: None)
  Receive Date: 20091111
  Receipt Date: 20091102
  Transmission Date: 20100525
  Serious: Yes (Other)
  Sender: FDA-Public Use
  Company Number: SE-PFIZER INC-2009291474

PATIENT
  Age: 32 Year
  Sex: Female

DRUGS (2)
  1. PROVERA [Suspect]
     Indication: AMENORRHOEA
     Dosage: 10 MG, 1X/DAY
     Dates: start: 20081128, end: 20081207
  2. PERGOTIME [Concomitant]
     Dosage: UNK

REACTIONS (3)
  - CARPAL TUNNEL SYNDROME [None]
  - GENITAL HERPES [None]
  - GESTATIONAL DIABETES [None]
